FAERS Safety Report 19253547 (Version 1)
Quarter: 2021Q2

REPORT INFORMATION
  Report Type: Spontaneous
  Country: US (occurrence: US)
  Receive Date: 20210513
  Receipt Date: 20210513
  Transmission Date: 20210717
  Serious: Yes (Hospitalization)
  Sender: FDA-Public Use
  Company Number: None

PATIENT
  Age: 29 Year
  Sex: Male
  Weight: 74.8 kg

DRUGS (9)
  1. CYCLOBENZAPRINE. [Concomitant]
     Active Substance: CYCLOBENZAPRINE
  2. DULOXETINE. [Concomitant]
     Active Substance: DULOXETINE
  3. POLYETHYLENE GLYCOL [Concomitant]
     Active Substance: POLYETHYLENE GLYCOLS
  4. DICYCLOMINE [Concomitant]
     Active Substance: DICYCLOMINE HYDROCHLORIDE
  5. HYOSCYAMINE. [Concomitant]
     Active Substance: HYOSCYAMINE
  6. STELARA [Suspect]
     Active Substance: USTEKINUMAB
  7. OXYCODONE [Concomitant]
     Active Substance: OXYCODONE
  8. PREDNISONE TAPER [Concomitant]
     Active Substance: PREDNISONE
  9. ONDANSETRON [Concomitant]
     Active Substance: ONDANSETRON

REACTIONS (7)
  - Haemophilus infection [None]
  - Staphylococcal sepsis [None]
  - Crohn^s disease [None]
  - Alpha haemolytic streptococcal infection [None]
  - Klebsiella infection [None]
  - Beta haemolytic streptococcal infection [None]
  - Abscess drainage [None]
